FAERS Safety Report 22394756 (Version 1)
Quarter: 2023Q2

REPORT INFORMATION
  Report Type: Spontaneous
  Country: US (occurrence: US)
  Receive Date: 20230601
  Receipt Date: 20230601
  Transmission Date: 20230722
  Serious: No
  Sender: FDA-Public Use
  Company Number: US-APIL-2313166US

PATIENT
  Age: 47 Year
  Sex: Female
  Weight: 99.8 kg

DRUGS (12)
  1. LEXAPRO [Suspect]
     Active Substance: ESCITALOPRAM OXALATE
     Indication: Product used for unknown indication
     Dosage: UNK MG
  2. KORLYM [Suspect]
     Active Substance: MIFEPRISTONE
     Indication: Cushing^s syndrome
     Dosage: 300/600 MG ALTERNATING
     Route: 048
     Dates: start: 20221123
  3. KORLYM [Suspect]
     Active Substance: MIFEPRISTONE
     Dosage: 300 MG, QD
     Route: 048
     Dates: start: 20220703, end: 20221122
  4. KORLYM [Suspect]
     Active Substance: MIFEPRISTONE
     Dosage: 300 MG, QOD
     Route: 048
     Dates: start: 20220610, end: 20220702
  5. AMITRIPTYLINE [Concomitant]
     Active Substance: AMITRIPTYLINE
  6. CRESTOR [Concomitant]
     Active Substance: ROSUVASTATIN CALCIUM
  7. LEVOTHYROXINE [Concomitant]
     Active Substance: LEVOTHYROXINE
  8. LISINOPRIL [Concomitant]
     Active Substance: LISINOPRIL
  9. METFORMIN [Concomitant]
     Active Substance: METFORMIN HYDROCHLORIDE
  10. NOVOLOG [Concomitant]
     Active Substance: INSULIN ASPART
  11. PRILOSEC [Concomitant]
     Active Substance: OMEPRAZOLE MAGNESIUM
  12. TRESIBA [Concomitant]
     Active Substance: INSULIN DEGLUDEC

REACTIONS (4)
  - Blood creatinine increased [Unknown]
  - Proteinuria [Unknown]
  - Blood thyroid stimulating hormone increased [Unknown]
  - Tremor [Unknown]

NARRATIVE: CASE EVENT DATE: 20230301
